FAERS Safety Report 10211086 (Version 2)
Quarter: 2014Q2

REPORT INFORMATION
  Report Type: Spontaneous
  Country: US (occurrence: None)
  Receive Date: 20140528
  Receipt Date: 20140618
  Transmission Date: 20141212
  Serious: Yes (Death, Life-Threatening, Hospitalization, Other)
  Sender: FDA-Public Use
  Company Number: ADR-2014-00594

PATIENT
  Age: 62 Year
  Sex: Male

DRUGS (2)
  1. BACLOFEN [Suspect]
     Indication: POST LAMINECTOMY SYNDROME
     Dosage: 205 MCG/DAY
  2. BUPIVICAINE [Suspect]

REACTIONS (5)
  - Pain [None]
  - Unresponsive to stimuli [None]
  - Pump reservoir issue [None]
  - Product packaging quantity issue [None]
  - Pneumonia aspiration [None]
